FAERS Safety Report 22283001 (Version 1)
Quarter: 2023Q2

REPORT INFORMATION
  Report Type: Spontaneous
  Country: ES (occurrence: ES)
  Receive Date: 20230504
  Receipt Date: 20230504
  Transmission Date: 20230722
  Serious: Yes (Other)
  Sender: FDA-Public Use
  Company Number: None

PATIENT
  Sex: Male

DRUGS (1)
  1. FLUOROURACIL [Suspect]
     Active Substance: FLUOROURACIL
     Indication: Chemotherapy
     Dates: start: 20220524, end: 20220524

REACTIONS (3)
  - Administration site extravasation [Unknown]
  - Wrong technique in product usage process [Unknown]
  - Administration site oedema [Unknown]

NARRATIVE: CASE EVENT DATE: 20220524
